FAERS Safety Report 8401441-8 (Version None)
Quarter: 2012Q2

REPORT INFORMATION
  Report Type: 
  Country: None (occurrence: None)
  Receive Date: 20120601
  Receipt Date: 20120524
  Transmission Date: 20120825
  Serious: Yes (Other)
  Sender: FDA-Public Use
  Company Number: JP-PFIZER INC-2012031805

PATIENT
  Age: 80 Year
  Sex: Female

DRUGS (5)
  1. BENIDIPINE [Interacting]
     Dosage: 8 MG DAILY
     Route: 048
  2. RISEDRONATE SODIUM [Concomitant]
     Dosage: 17.5 MG, 1X/WEEK
     Route: 048
  3. ARICEPT [Suspect]
     Indication: DEMENTIA ALZHEIMER'S TYPE
     Dosage: 5 MG DAILY
     Route: 048
     Dates: start: 20100901
  4. ATORVASTATIN CALCIUM [Interacting]
     Dosage: 10 MG DAILY
     Route: 048
  5. ALFACALCIDOL [Concomitant]
     Dosage: 0.5 UG DAILY
     Route: 048

REACTIONS (2)
  - DRUG INTERACTION [None]
  - ELECTROCARDIOGRAM QT PROLONGED [None]
